FAERS Safety Report 18554066 (Version 1)
Quarter: 2020Q4

REPORT INFORMATION
  Report Type: Spontaneous
  Country: CN (occurrence: CN)
  Receive Date: 20201127
  Receipt Date: 20201127
  Transmission Date: 20210114
  Serious: Yes (Hospitalization)
  Sender: FDA-Public Use
  Company Number: CN-ABBVIE-20P-035-3668461-00

PATIENT
  Age: 44 Year
  Sex: Male

DRUGS (1)
  1. LIPANTHYL [Suspect]
     Active Substance: FENOFIBRATE
     Indication: LIPID METABOLISM DISORDER
     Route: 048
     Dates: start: 20201015, end: 20201025

REACTIONS (1)
  - Hepatic function abnormal [Recovered/Resolved]

NARRATIVE: CASE EVENT DATE: 20201024
